FAERS Safety Report 9309109 (Version 1)
Quarter: 2013Q2

REPORT INFORMATION
  Report Type: Spontaneous
  Country: US (occurrence: US)
  Receive Date: 20130525
  Receipt Date: 20130525
  Transmission Date: 20140414
  Serious: No
  Sender: FDA-Public Use
  Company Number: US-BRISTOL-MYERS SQUIBB COMPANY-18696674

PATIENT
  Age: 64 Year
  Sex: Male
  Weight: 115.19 kg

DRUGS (3)
  1. BYDUREON [Suspect]
     Indication: TYPE 2 DIABETES MELLITUS
     Route: 058
     Dates: start: 201212
  2. PROZAC [Concomitant]
     Indication: DEPRESSION
     Route: 048
  3. ELAVIL [Concomitant]
     Indication: DEPRESSION
     Route: 048

REACTIONS (3)
  - Gastrointestinal sounds abnormal [Recovering/Resolving]
  - Abdominal distension [Recovering/Resolving]
  - Dyspepsia [Recovering/Resolving]
